FAERS Safety Report 25997864 (Version 1)
Quarter: 2025Q4

REPORT INFORMATION
  Report Type: Report from Study
  Country: US (occurrence: US)
  Receive Date: 20251105
  Receipt Date: 20251105
  Transmission Date: 20260117
  Serious: Yes (Other)
  Sender: ABBVIE
  Company Number: US-ABBVIE-6515913

PATIENT
  Age: 76 Year
  Sex: Female

DRUGS (1)
  1. SKYRIZI [Suspect]
     Active Substance: RISANKIZUMAB-RZAA
     Indication: Product used for unknown indication
     Dosage: END DATE 2023
     Route: 058
     Dates: start: 20230101

REACTIONS (6)
  - Cerebrovascular accident [Unknown]
  - Wound [Unknown]
  - Psoriasis [Not Recovered/Not Resolved]
  - Skin laceration [Unknown]
  - Skin haemorrhage [Unknown]
  - Pain in extremity [Unknown]

NARRATIVE: CASE EVENT DATE: 20250930
